FAERS Safety Report 23564621 (Version 1)
Quarter: 2024Q1

REPORT INFORMATION
  Report Type: Spontaneous
  Country: FR (occurrence: FR)
  Receive Date: 20240226
  Receipt Date: 20240226
  Transmission Date: 20240409
  Serious: Yes (Hospitalization)
  Sender: FDA-Public Use
  Company Number: None

PATIENT
  Age: 61 Year
  Sex: Female
  Weight: 74 kg

DRUGS (10)
  1. AMOXICILLIN [Suspect]
     Active Substance: AMOXICILLIN
     Indication: Urinary tract infection
     Dosage: 3 G, QD
     Route: 048
     Dates: start: 20231108, end: 20231112
  2. CLAVULANIC ACID [Suspect]
     Active Substance: CLAVULANIC ACID
     Indication: Urinary tract infection
     Dosage: 375 MG, QD
     Route: 048
     Dates: start: 20231108, end: 20231112
  3. FERINJECT [Suspect]
     Active Substance: FERRIC CARBOXYMALTOSE
     Indication: Anaemia
     Dosage: 1000 MG
     Route: 042
     Dates: start: 20231109, end: 20231109
  4. HYDROXYUREA [Suspect]
     Active Substance: HYDROXYUREA
     Indication: Philadelphia positive chronic myeloid leukaemia
     Dosage: 1500 MG, QD
     Route: 048
     Dates: start: 20231112, end: 20231115
  5. IVERMECTIN [Suspect]
     Active Substance: IVERMECTIN
     Indication: Prophylaxis
     Dosage: 15 MG
     Route: 048
     Dates: start: 20231108, end: 20231108
  6. ACETAMINOPHEN [Suspect]
     Active Substance: ACETAMINOPHEN
     Indication: Pain
     Dosage: 1 G, QD
     Route: 048
     Dates: start: 20231110, end: 20231117
  7. PIPERACILLIN SODIUM\TAZOBACTAM SODIUM [Suspect]
     Active Substance: PIPERACILLIN SODIUM\TAZOBACTAM SODIUM
     Indication: Urinary tract infection
     Dosage: 16 G, QD
     Route: 042
     Dates: start: 20231112, end: 20231120
  8. ALLOPURINOL [Concomitant]
     Active Substance: ALLOPURINOL
     Indication: Product used for unknown indication
     Dosage: 300 MG, QD
     Route: 048
     Dates: start: 20230108
  9. AZACITIDINE [Concomitant]
     Active Substance: AZACITIDINE
     Indication: Product used for unknown indication
     Dosage: 145 MG, QD
     Route: 058
     Dates: start: 20231115, end: 20231122
  10. BARACLUDE [Concomitant]
     Active Substance: ENTECAVIR
     Indication: Product used for unknown indication
     Dosage: 0.500MG QD
     Route: 048
     Dates: start: 20231117

REACTIONS (1)
  - Mixed liver injury [Recovering/Resolving]

NARRATIVE: CASE EVENT DATE: 20231114
